FAERS Safety Report 15020700 (Version 2)
Quarter: 2018Q3

REPORT INFORMATION
  Report Type: Spontaneous
  Country: JP (occurrence: JP)
  Receive Date: 20180618
  Receipt Date: 20180703
  Transmission Date: 20181010
  Serious: Yes (Hospitalization)
  Sender: FDA-Public Use
  Company Number: JP-TEVA-2018-JP-909431

PATIENT
  Age: 77 Year
  Sex: Male

DRUGS (2)
  1. RECOMBINANT TISSUE?TYPE PLASMINOGEN ACTIVATOR [Suspect]
     Active Substance: ALTEPLASE
     Indication: ISCHAEMIC STROKE
     Route: 042
  2. HEPARIN [Suspect]
     Active Substance: HEPARIN SODIUM
     Indication: ISCHAEMIC STROKE
     Route: 065

REACTIONS (2)
  - Cerebral hyperperfusion syndrome [Recovered/Resolved]
  - Haemorrhage intracranial [Recovered/Resolved]
